FAERS Safety Report 4571847-6 (Version None)
Quarter: 2005Q1

REPORT INFORMATION
  Report Type: 
  Country: None (occurrence: None)
  Receive Date: 20050207
  Receipt Date: 20050125
  Transmission Date: 20050727
  Serious: Yes (Other)
  Sender: FDA-Public Use
  Company Number: US-GLAXOSMITHKLINE-A0542110A

PATIENT
  Age: 34 Year
  Sex: Female
  Weight: 59 kg

DRUGS (2)
  1. NICODERM CQ [Suspect]
     Indication: SMOKING CESSATION THERAPY
     Dosage: 21MG PER DAY
     Route: 062
     Dates: start: 20050110, end: 20050125
  2. BIRTH CONTROL PILL [Concomitant]
     Indication: CONTRACEPTION

REACTIONS (4)
  - ANXIETY [None]
  - DYSPNOEA [None]
  - HEART RATE INCREASED [None]
  - PNEUMONIA [None]
